FAERS Safety Report 7303288-2 (Version None)
Quarter: 2011Q1

REPORT INFORMATION
  Report Type: 
  Country: None (occurrence: None)
  Receive Date: 20110221
  Receipt Date: 20110207
  Transmission Date: 20110831
  Serious: Yes (Other)
  Sender: FDA-Public Use
  Company Number: US-RANBAXY-2011RR-41849

PATIENT
  Sex: Female

DRUGS (7)
  1. PREDNISOLONE [Suspect]
     Indication: STEROID THERAPY
     Route: 065
  2. CIPROFLOXACIN [Suspect]
     Indication: ERYTHEMA
  3. LEVAQUIN [Suspect]
     Indication: BACTERIAL INFECTION
     Dosage: 500 MG, QD
     Dates: start: 20081212, end: 20081218
  4. LEVAQUIN [Suspect]
     Indication: UPPER RESPIRATORY TRACT INFECTION
     Dosage: 500 MG, QD
     Route: 048
     Dates: start: 20081126, end: 20081202
  5. CIPROFLOXACIN [Suspect]
     Indication: ANTIBIOTIC THERAPY
     Route: 065
  6. LEVAQUIN [Suspect]
     Indication: PROPHYLAXIS
     Dosage: 500 MG, QD
     Route: 048
     Dates: start: 20051103, end: 20051107
  7. LEVAQUIN [Suspect]
     Dosage: 750 MG, QD
     Dates: start: 20081103, end: 20081112

REACTIONS (2)
  - TENDONITIS [None]
  - ROTATOR CUFF SYNDROME [None]
